FAERS Safety Report 17243142 (Version 1)
Quarter: 2020Q1

REPORT INFORMATION
  Report Type: Spontaneous
  Country: US (occurrence: US)
  Receive Date: 20200107
  Receipt Date: 20200107
  Transmission Date: 20200409
  Serious: Yes (Other)
  Sender: FDA-Public Use
  Company Number: US-CELGENEUS-USA-20200100476

PATIENT
  Age: 72 Year
  Sex: Female

DRUGS (1)
  1. ROMIDEPSIN. [Suspect]
     Active Substance: ROMIDEPSIN
     Indication: PERIPHERAL T-CELL LYMPHOMA UNSPECIFIED
     Dosage: 14 MILLIGRAM/SQ. METER
     Route: 041
     Dates: start: 201512, end: 201605

REACTIONS (2)
  - Plasmablastic lymphoma [Recovered/Resolved]
  - Cytopenia [Unknown]

NARRATIVE: CASE EVENT DATE: 201605
